FAERS Safety Report 5344897-X (Version None)
Quarter: 2007Q2

REPORT INFORMATION
  Report Type: 
  Country: None (occurrence: None)
  Receive Date: 20070416
  Receipt Date: 20070120
  Transmission Date: 20071010
  Serious: No
  Sender: FDA-Public Use
  Company Number: 2007SP000237

PATIENT
  Age: 63 Year
  Sex: Female
  Weight: 95.2554 kg

DRUGS (4)
  1. LUNESTA [Suspect]
     Indication: INSOMNIA
     Dosage: 3 MG PRN ORAL
     Route: 048
     Dates: start: 20061130, end: 20061201
  2. WELLBUTRIN [Concomitant]
  3. ALEVE [Concomitant]
  4. LOTREL [Concomitant]

REACTIONS (1)
  - DYSGEUSIA [None]
